FAERS Safety Report 18748030 (Version 1)
Quarter: 2021Q1

REPORT INFORMATION
  Report Type: Spontaneous
  Country: US (occurrence: US)
  Receive Date: 20210115
  Receipt Date: 20210115
  Transmission Date: 20210419
  Serious: Yes (Other)
  Sender: FDA-Public Use
  Company Number: US-TEVA-2021-US-1868648

PATIENT
  Age: 34 Year
  Sex: Female

DRUGS (1)
  1. APRI [Suspect]
     Active Substance: DESOGESTREL\ETHINYL ESTRADIOL
     Route: 065

REACTIONS (5)
  - Skin mass [Unknown]
  - Hypersensitivity [Unknown]
  - Angioedema [Unknown]
  - Urticaria [Unknown]
  - Eye swelling [Unknown]
